FAERS Safety Report 18586015 (Version 2)
Quarter: 2021Q3

REPORT INFORMATION
  Report Type: Spontaneous
  Country: US (occurrence: US)
  Receive Date: 20201207
  Receipt Date: 20210714
  Transmission Date: 20211014
  Serious: Yes (Other)
  Sender: FDA-Public Use
  Company Number: US-JNJFOC-20201149961

PATIENT
  Age: 38 Year
  Sex: Male

DRUGS (2)
  1. IMODIUM [Suspect]
     Active Substance: LOPERAMIDE HYDROCHLORIDE
     Route: 065
  2. IMODIUM [Suspect]
     Active Substance: LOPERAMIDE HYDROCHLORIDE
     Indication: PRODUCT USED FOR UNKNOWN INDICATION
     Dosage: HE STARTED USING 200 MG/DAY LOPERAMIDE (100 PILLS) FOR 1 YEAR
     Route: 065

REACTIONS (3)
  - Drug use disorder [Recovered/Resolved]
  - Withdrawal syndrome [Recovered/Resolved]
  - Overdose [Unknown]
